FAERS Safety Report 7546747-X (Version None)
Quarter: 2011Q2

REPORT INFORMATION
  Report Type: 
  Country: None (occurrence: None)
  Receive Date: 20110614
  Receipt Date: 20110606
  Transmission Date: 20111010
  Serious: Yes (Life-Threatening, Hospitalization)
  Sender: FDA-Public Use
  Company Number: B0722425A

PATIENT
  Sex: Male
  Weight: 94 kg

DRUGS (5)
  1. ZANTAC [Suspect]
     Indication: ALLERGY PROPHYLAXIS
     Route: 042
     Dates: start: 20110504, end: 20110504
  2. CARBOPLATIN [Suspect]
     Route: 042
     Dates: start: 20110504, end: 20110504
  3. METOCLOPRAMIDE [Concomitant]
     Dosage: 10MG THREE TIMES PER DAY
     Route: 065
  4. ZOFRAN [Suspect]
     Indication: PROPHYLAXIS
     Route: 042
     Dates: start: 20110504, end: 20110504
  5. MAGNESIUM HYDROXIDE [Concomitant]
     Dosage: 1448MG THREE TIMES PER DAY
     Route: 065

REACTIONS (1)
  - ANAPHYLACTIC SHOCK [None]
